FAERS Safety Report 10538846 (Version 2)
Quarter: 2014Q4

REPORT INFORMATION
  Report Type: Spontaneous
  Country: LU (occurrence: LU)
  Receive Date: 20141023
  Receipt Date: 20141027
  Transmission Date: 20150529
  Serious: Yes (Other)
  Sender: FDA-Public Use
  Company Number: LU-BAYER-2014-154000

PATIENT
  Age: 85 Year
  Sex: Male

DRUGS (5)
  1. XOFIGO [Suspect]
     Active Substance: RADIUM RA-223 DICHLORIDE
     Indication: METASTASES TO BONE
     Dosage: UNK
     Dates: start: 20140509, end: 20140509
  2. XOFIGO [Suspect]
     Active Substance: RADIUM RA-223 DICHLORIDE
     Indication: NEOPLASM PROSTATE
     Dosage: UNK
     Dates: start: 20140814, end: 20140814
  3. XOFIGO [Suspect]
     Active Substance: RADIUM RA-223 DICHLORIDE
     Indication: NEOPLASM PROSTATE
     Dosage: UNK
     Dates: start: 20140926, end: 20140926
  4. XOFIGO [Suspect]
     Active Substance: RADIUM RA-223 DICHLORIDE
     Indication: NEOPLASM PROSTATE
     Dosage: UNK
     Dates: start: 20140410, end: 20140410
  5. XOFIGO [Suspect]
     Active Substance: RADIUM RA-223 DICHLORIDE
     Indication: NEOPLASM PROSTATE
     Dosage: UNK
     Dates: start: 20140711, end: 20140711

REACTIONS (1)
  - Metastases to bone [None]
